FAERS Safety Report 9325028 (Version 1)
Quarter: 2013Q2

REPORT INFORMATION
  Report Type: Report from Study
  Country: US (occurrence: US)
  Receive Date: 20130603
  Receipt Date: 20130603
  Transmission Date: 20140414
  Serious: No
  Sender: FDA-Public Use
  Company Number: US-ASTRAZENECA-2013SE35579

PATIENT
  Age: 43 Year
  Sex: Female
  Weight: 65.8 kg

DRUGS (8)
  1. SEROQUEL XR [Suspect]
     Indication: BIPOLAR II DISORDER
     Route: 048
     Dates: start: 2009
  2. SEROQUEL XR [Suspect]
     Indication: DEPRESSION
     Route: 048
     Dates: start: 2009
  3. SEROQUEL XR [Suspect]
     Indication: ANXIETY
     Route: 048
     Dates: start: 2009
  4. ANTIBIOTICS [Suspect]
     Route: 065
  5. FLAGYL [Concomitant]
     Indication: ANTIBIOTIC THERAPY
     Dosage: BID
     Route: 048
     Dates: start: 201301, end: 2013
  6. CIPRO [Concomitant]
     Indication: ANTIBIOTIC THERAPY
     Dosage: BID
     Route: 048
     Dates: start: 201301, end: 2013
  7. PHENERGAN [Concomitant]
     Indication: VOMITING
     Route: 054
     Dates: start: 201301, end: 2013
  8. OTHER LIST OF MEDICATIONS WE HAVE [Concomitant]

REACTIONS (5)
  - Polyp [Unknown]
  - Malaise [Unknown]
  - Vomiting [Unknown]
  - Urticaria [Unknown]
  - Off label use [Unknown]
